FAERS Safety Report 5638880-4 (Version None)
Quarter: 2008Q1

REPORT INFORMATION
  Report Type: 
  Country: None (occurrence: None)
  Receive Date: 20080226
  Receipt Date: 20080215
  Transmission Date: 20080703
  Serious: Yes (Death)
  Sender: FDA-Public Use
  Company Number: SI-ROCHE-547686

PATIENT
  Age: 45 Year
  Sex: Male

DRUGS (1)
  1. CAPECITABINE [Suspect]
     Indication: COLON CANCER
     Dosage: CURRENT CYCLE NUMBER: 4.
     Route: 048
     Dates: start: 20071102, end: 20080201

REACTIONS (1)
  - DEATH [None]
